FAERS Safety Report 7519629-7 (Version None)
Quarter: 2011Q2

REPORT INFORMATION
  Report Type: 
  Country: None (occurrence: None)
  Receive Date: 20110602
  Receipt Date: 20110524
  Transmission Date: 20111010
  Serious: Yes (Other)
  Sender: FDA-Public Use
  Company Number: A0929314A

PATIENT
  Sex: Male

DRUGS (4)
  1. ADDERALL 10 [Concomitant]
  2. VALPROIC ACID [Concomitant]
  3. LAMICTAL [Suspect]
     Indication: PARTIAL SEIZURES
     Dosage: 450MG PER DAY
     Route: 048
     Dates: start: 20041101
  4. LORAZEPAM [Concomitant]

REACTIONS (6)
  - ALVEOLITIS ALLERGIC [None]
  - ARTHRALGIA [None]
  - PULMONARY GRANULOMA [None]
  - ABNORMAL BEHAVIOUR [None]
  - RASH GENERALISED [None]
  - MENTAL DISORDER [None]
